FAERS Safety Report 20087641 (Version 1)
Quarter: 2021Q4

REPORT INFORMATION
  Report Type: Spontaneous
  Country: US (occurrence: US)
  Receive Date: 20211118
  Receipt Date: 20211118
  Transmission Date: 20220303
  Serious: Yes (Other)
  Sender: FDA-Public Use
  Company Number: US-PFIZER INC-202101552715

PATIENT
  Age: 72 Year
  Sex: Male

DRUGS (5)
  1. CYTARABINE [Suspect]
     Active Substance: CYTARABINE
     Indication: Acute myeloid leukaemia
     Dosage: UNK
  2. HYDROXYUREA [Suspect]
     Active Substance: HYDROXYUREA
     Indication: Acute myeloid leukaemia
     Dosage: UNK
  3. CEFTAZIDIME [Concomitant]
     Active Substance: CEFTAZIDIME
     Indication: Septic shock
     Dosage: UNK
  4. CEFTAZIDIME [Concomitant]
     Active Substance: CEFTAZIDIME
     Indication: Prophylaxis
  5. VANCOMYCIN [Concomitant]
     Active Substance: VANCOMYCIN
     Indication: Septic shock
     Dosage: UNK
     Route: 042

REACTIONS (2)
  - Neutropenia [Recovering/Resolving]
  - Neutropenic colitis [Unknown]
